FAERS Safety Report 10184151 (Version 3)
Quarter: 2014Q2

REPORT INFORMATION
  Report Type: Spontaneous
  Country: RU (occurrence: RU)
  Receive Date: 20140520
  Receipt Date: 20140604
  Transmission Date: 20141212
  Serious: Yes (Hospitalization)
  Sender: FDA-Public Use
  Company Number: RU-US-EMD SERONO, INC.-7284769

PATIENT
  Age: 31 Year
  Sex: Female

DRUGS (5)
  1. GONAL-F [Suspect]
     Indication: OVULATION INDUCTION
     Route: 058
     Dates: start: 201302
  2. GONAL-F [Suspect]
     Indication: INFERTILITY FEMALE
  3. ORGALUTRAN                         /01453701/ [Concomitant]
     Indication: PRODUCT USED FOR UNKNOWN INDICATION
     Dosage: 0.25(UNITS UNSPECIFIED) DAILY
  4. MENOPUR                            /01277604/ [Concomitant]
     Indication: PRODUCT USED FOR UNKNOWN INDICATION
     Dosage: 150(UNITS UNSPECIFIED) DAILY
  5. OVITRELLE [Concomitant]
     Indication: PRODUCT USED FOR UNKNOWN INDICATION
     Dates: start: 20130216

REACTIONS (4)
  - Defect conduction intraventricular [Recovered/Resolved]
  - Ovarian hyperstimulation syndrome [Recovered/Resolved]
  - Ascites [Recovered/Resolved]
  - Hydrothorax [Recovered/Resolved]
